FAERS Safety Report 5969393-8 (Version None)
Quarter: 2008Q4

REPORT INFORMATION
  Report Type: 
  Country: None (occurrence: None)
  Receive Date: 20081126
  Receipt Date: 20080829
  Transmission Date: 20090506
  Serious: No
  Sender: FDA-Public Use
  Company Number: US-ABBOTT-08P-163-0473218-00

PATIENT
  Sex: Male
  Weight: 77.18 kg

DRUGS (2)
  1. SIMCOR [Suspect]
     Indication: HIGH DENSITY LIPOPROTEIN DECREASED
     Route: 048
     Dates: start: 20080801
  2. OMEPRAZOLE MAGNESIUM [Concomitant]
     Indication: DYSPEPSIA
     Route: 048

REACTIONS (1)
  - FLUSHING [None]
